FAERS Safety Report 13057474 (Version 1)
Quarter: 2016Q4

REPORT INFORMATION
  Report Type: Other
  Country: JP (occurrence: JP)
  Receive Date: 20161223
  Receipt Date: 20161223
  Transmission Date: 20170207
  Serious: Yes (Other)
  Sender: FDA-Public Use
  Company Number: JP-ACTELION-A-CH2016-147158

PATIENT
  Age: 8 Month
  Sex: Female

DRUGS (3)
  1. NITRIC OXIDE. [Concomitant]
     Active Substance: NITRIC OXIDE
     Route: 055
  2. TADALAFIL [Concomitant]
     Active Substance: TADALAFIL
     Route: 048
  3. BOSENTAN. [Suspect]
     Active Substance: BOSENTAN
     Indication: PULMONARY HYPERTENSION
     Route: 048

REACTIONS (2)
  - Pulmonary congestion [Unknown]
  - Pulmonary artery banding [Unknown]
